FAERS Safety Report 9320636 (Version 2)
Quarter: 2013Q2

REPORT INFORMATION
  Report Type: Spontaneous
  Country: IE (occurrence: IE)
  Receive Date: 20130531
  Receipt Date: 20130621
  Transmission Date: 20140414
  Serious: Yes (Death, Hospitalization, Other)
  Sender: FDA-Public Use
  Company Number: IE-ROCHE-1228853

PATIENT
  Sex: Male

DRUGS (1)
  1. LARIAM [Suspect]
     Indication: PROPHYLAXIS
     Route: 065

REACTIONS (7)
  - Completed suicide [Fatal]
  - Suicide attempt [Unknown]
  - Agitation [Unknown]
  - Paranoia [Unknown]
  - Alcohol abuse [Unknown]
  - Suicidal ideation [Unknown]
  - Post-traumatic stress disorder [Unknown]
